FAERS Safety Report 20263141 (Version 2)
Quarter: 2022Q1

REPORT INFORMATION
  Report Type: Spontaneous
  Country: DE (occurrence: None)
  Receive Date: 20211231
  Receipt Date: 20220103
  Transmission Date: 20220423
  Serious: Yes (Other)
  Sender: FDA-Public Use
  Company Number: DE-Merck Healthcare KGaA-9279017

PATIENT
  Sex: Female
  Weight: 63 kg

DRUGS (2)
  1. EUTHYROX [Suspect]
     Active Substance: LEVOTHYROXINE SODIUM
     Indication: Autoimmune thyroiditis
     Dates: start: 2013, end: 20211109
  2. MOXIFLOXACIN HYDROCHLORIDE [Concomitant]
     Active Substance: MOXIFLOXACIN HYDROCHLORIDE
     Indication: Product used for unknown indication

REACTIONS (23)
  - Syncope [Recovering/Resolving]
  - Cardiovascular disorder [Recovering/Resolving]
  - Fall [Unknown]
  - Abnormal faeces [Recovering/Resolving]
  - Gastric disorder [Unknown]
  - Dizziness [Recovering/Resolving]
  - Asthma [Unknown]
  - Histamine intolerance [Recovering/Resolving]
  - Myalgia [Recovering/Resolving]
  - Eye swelling [Unknown]
  - Fatigue [Unknown]
  - Irritability [Unknown]
  - Hypersensitivity [Unknown]
  - Restlessness [Unknown]
  - Hyperhidrosis [Recovering/Resolving]
  - Palpitations [Unknown]
  - Flushing [Recovering/Resolving]
  - Urticaria [Unknown]
  - Insomnia [Unknown]
  - Thyroxine free increased [Unknown]
  - Headache [Unknown]
  - Diarrhoea [Unknown]
  - Treatment noncompliance [Unknown]
